FAERS Safety Report 6380710-X (Version None)
Quarter: 2009Q3

REPORT INFORMATION
  Report Type: 
  Country: None (occurrence: None)
  Receive Date: 20090929
  Receipt Date: 20090921
  Transmission Date: 20100115
  Serious: Yes (Other)
  Sender: FDA-Public Use
  Company Number: CH-ROCHE-657620

PATIENT
  Age: 76 Year
  Weight: 62 kg

DRUGS (4)
  1. CAPECITABINE [Suspect]
     Indication: DRUG USE FOR UNKNOWN INDICATION
     Route: 065
     Dates: start: 20090507, end: 20090720
  2. CAPECITABINE [Suspect]
     Dosage: DOSAGE LOWERED
     Route: 065
     Dates: start: 20090720, end: 20090911
  3. OMEPRAZOLE [Concomitant]
  4. NEXIUM [Concomitant]

REACTIONS (2)
  - DISEASE PROGRESSION [None]
  - PALMAR-PLANTAR ERYTHRODYSAESTHESIA SYNDROME [None]
